FAERS Safety Report 7069603-2 (Version None)
Quarter: 2010Q4

REPORT INFORMATION
  Report Type: 
  Country: None (occurrence: None)
  Receive Date: 20101028
  Receipt Date: 20100413
  Transmission Date: 20110411
  Serious: No
  Sender: FDA-Public Use
  Company Number: US-WYE-H14593810

PATIENT
  Sex: Male
  Weight: 77.18 kg

DRUGS (7)
  1. EFFEXOR [Suspect]
     Indication: DEPRESSION
     Route: 048
     Dates: start: 20060101, end: 20100401
  2. LIPITOR [Concomitant]
  3. CASODEX [Concomitant]
  4. LORAZEPAM [Concomitant]
  5. LUPRON [Concomitant]
  6. ZOLEDRONATE [Concomitant]
  7. ACETYLSALICYLIC ACID [Concomitant]

REACTIONS (7)
  - ANXIETY [None]
  - DISORIENTATION [None]
  - DIZZINESS [None]
  - DRUG WITHDRAWAL SYNDROME [None]
  - FATIGUE [None]
  - HEADACHE [None]
  - HYPERHIDROSIS [None]
